FAERS Safety Report 5318614-3 (Version None)
Quarter: 2007Q1

REPORT INFORMATION
  Report Type: 
  Country: None (occurrence: None)
  Receive Date: 20070130
  Receipt Date: 20061006
  Transmission Date: 20070707
  Serious: No
  Sender: FDA-Public Use
  Company Number: 200618854US

PATIENT
  Age: 56 Year
  Sex: Female
  Weight: 61.2 kg

DRUGS (8)
  1. KETEK [Suspect]
     Indication: LYME DISEASE
     Dosage: 400 MG BID PO
     Route: 048
     Dates: start: 20060301
  2. CEFTIN [Suspect]
     Indication: LYME DISEASE
     Dosage: 500 MG BID PO
     Route: 048
     Dates: start: 20060301
  3. HYDROXYCHLOROQUINE (PLAQUENIL   /00072601/) [Suspect]
     Indication: LYME DISEASE
     Dosage: 200 MG QD PO
     Route: 048
     Dates: start: 20060301, end: 20061006
  4. PAROXETINE [Concomitant]
  5. DULOXETINE HYDROCHLORIDE (CYMBALTA) [Concomitant]
  6. SPIRONOLACTONE [Concomitant]
  7. CLONAZEPAM [Concomitant]
  8. MINOXIDIL (ROGAINE) [Concomitant]

REACTIONS (1)
  - HAIR COLOUR CHANGES [None]
